FAERS Safety Report 25311083 (Version 2)
Quarter: 2025Q2

REPORT INFORMATION
  Report Type: Report from Study
  Country: ES (occurrence: ES)
  Receive Date: 20250514
  Receipt Date: 20250520
  Transmission Date: 20250716
  Serious: No
  Sender: AUROBINDO
  Company Number: ES-AUROBINDO-AUR-APL-2025-025004

PATIENT
  Age: 66 Year
  Sex: Female

DRUGS (20)
  1. BELINOSTAT [Suspect]
     Active Substance: BELINOSTAT
     Indication: Peripheral T-cell lymphoma unspecified stage IV
     Route: 042
     Dates: start: 20250425, end: 20250425
  2. BELINOSTAT [Suspect]
     Active Substance: BELINOSTAT
     Route: 042
     Dates: start: 20250426, end: 20250426
  3. BELINOSTAT [Suspect]
     Active Substance: BELINOSTAT
     Route: 042
     Dates: start: 20250427, end: 20250427
  4. BELINOSTAT [Suspect]
     Active Substance: BELINOSTAT
     Route: 042
     Dates: start: 20250428, end: 20250428
  5. BELINOSTAT [Suspect]
     Active Substance: BELINOSTAT
     Route: 042
     Dates: start: 20250429, end: 20250429
  6. DOXORUBICIN [Suspect]
     Active Substance: DOXORUBICIN
     Indication: Peripheral T-cell lymphoma unspecified stage IV
     Route: 065
     Dates: start: 20250425, end: 20250425
  7. CYCLOPHOSPHAMIDE [Suspect]
     Active Substance: CYCLOPHOSPHAMIDE
     Indication: Peripheral T-cell lymphoma unspecified stage IV
     Route: 065
     Dates: start: 20250425, end: 20250425
  8. PREDNISONE [Suspect]
     Active Substance: PREDNISONE
     Indication: Peripheral T-cell lymphoma unspecified stage IV
     Route: 065
     Dates: start: 20250425
  9. PREDNISONE [Suspect]
     Active Substance: PREDNISONE
     Route: 065
     Dates: start: 20250427
  10. PREDNISONE [Suspect]
     Active Substance: PREDNISONE
     Route: 065
     Dates: start: 20250428
  11. PREDNISONE [Suspect]
     Active Substance: PREDNISONE
     Route: 065
     Dates: start: 20250429
  12. ONCOVIN [Suspect]
     Active Substance: VINCRISTINE SULFATE
     Indication: Peripheral T-cell lymphoma unspecified stage IV
     Route: 065
     Dates: start: 20250425, end: 20250425
  13. PREDNISONE [Concomitant]
     Active Substance: PREDNISONE
     Indication: Hypersensitivity
     Dosage: 30 MILLIGRAM, ONCE A DAY
     Route: 048
     Dates: start: 20250404, end: 20250424
  14. LORATADINE [Concomitant]
     Active Substance: LORATADINE
     Indication: Hypersensitivity
     Dosage: 1 MILLIGRAM, TWO TIMES A DAY
     Route: 048
  15. Foli doce [Concomitant]
     Indication: Supportive care
     Route: 048
     Dates: start: 20250404
  16. FILGRASTIM [Concomitant]
     Active Substance: FILGRASTIM
     Indication: Neutropenia
     Route: 058
     Dates: start: 20250426
  17. OMEPRAZOLE [Concomitant]
     Active Substance: OMEPRAZOLE
     Indication: Gastrointestinal disorder
     Route: 048
     Dates: start: 20250424
  18. OMEPRAZOLE [Concomitant]
     Active Substance: OMEPRAZOLE
     Route: 048
     Dates: start: 20250429
  19. ALLOPURINOL [Concomitant]
     Active Substance: ALLOPURINOL
     Indication: Neoplasm
     Route: 048
     Dates: start: 20250425
  20. ALPRAZOLAM [Concomitant]
     Active Substance: ALPRAZOLAM
     Indication: Insomnia
     Route: 048
     Dates: start: 20250424

REACTIONS (2)
  - Oxygen saturation decreased [Recovered/Resolved]
  - Nausea [Recovered/Resolved]

NARRATIVE: CASE EVENT DATE: 20250425
